FAERS Safety Report 10176111 (Version 2)
Quarter: 2014Q2

REPORT INFORMATION
  Report Type: Spontaneous
  Country: US (occurrence: US)
  Receive Date: 20140516
  Receipt Date: 20140516
  Transmission Date: 20141212
  Serious: No
  Sender: FDA-Public Use
  Company Number: US-US-EMD SERONO, INC.-232460J08USA

PATIENT
  Age: 48 Year
  Sex: Female
  Weight: 82 kg

DRUGS (7)
  1. REBIF [Suspect]
     Indication: MULTIPLE SCLEROSIS
     Route: 058
     Dates: start: 20070907
  2. LITHIUM [Suspect]
     Indication: BIPOLAR DISORDER
     Route: 048
     Dates: start: 199611, end: 200711
  3. ASPIRIN [Suspect]
     Indication: PAIN
     Route: 065
  4. TEGRETOL [Concomitant]
     Indication: BIPOLAR DISORDER
     Route: 065
  5. WELLBUTRIN [Concomitant]
     Indication: BIPOLAR DISORDER
     Route: 065
  6. ATACAND [Concomitant]
     Indication: HYPERTENSION
     Route: 048
     Dates: start: 200006
  7. QUINAPRIL [Concomitant]
     Indication: HYPERTENSION
     Route: 065
     Dates: start: 2006

REACTIONS (2)
  - Renal impairment [Recovering/Resolving]
  - Renal disorder [Not Recovered/Not Resolved]
